FAERS Safety Report 7936385-9 (Version None)
Quarter: 2011Q4

REPORT INFORMATION
  Report Type: 
  Country: None (occurrence: None)
  Receive Date: 20111121
  Receipt Date: 20111110
  Transmission Date: 20120403
  Serious: Yes (Other)
  Sender: FDA-Public Use
  Company Number: DKLU1061360

PATIENT
  Age: 66 Year
  Sex: Female

DRUGS (4)
  1. PRILOSEC [Concomitant]
  2. DESOXYN [Suspect]
     Indication: ATTENTION DEFICIT/HYPERACTIVITY DISORDER
  3. SAM-E (ADEMETIONINE) [Concomitant]
  4. ACIPHEX [Concomitant]

REACTIONS (1)
  - RHABDOMYOLYSIS [None]
